FAERS Safety Report 12681487 (Version 1)
Quarter: 2016Q3

REPORT INFORMATION
  Report Type: Spontaneous
  Country: US (occurrence: US)
  Receive Date: 20160824
  Receipt Date: 20160824
  Transmission Date: 20161109
  Serious: Yes (Other)
  Sender: FDA-Public Use
  Company Number: US-LPDUSPRD-20160738

PATIENT
  Age: 26 Year
  Sex: Female

DRUGS (2)
  1. LIDOCAINE HCL [Suspect]
     Active Substance: LIDOCAINE HYDROCHLORIDE
     Dosage: 25 CC, 2%
     Route: 008
  2. CHLOROPROCAINE [Suspect]
     Active Substance: CHLOROPROCAINE
     Dosage: 10 CC OF 3%
     Route: 008

REACTIONS (1)
  - Toxicity to various agents [Unknown]
